FAERS Safety Report 8829825 (Version 4)
Quarter: 2013Q1

REPORT INFORMATION
  Report Type: Spontaneous
  Country: US (occurrence: US)
  Receive Date: 20121008
  Receipt Date: 20130114
  Transmission Date: 20140127
  Serious: Yes (Hospitalization, Other)
  Sender: FDA-Public Use
  Company Number: US-ASTRAZENECA-2012SE75727

PATIENT
  Age: 69 Year
  Sex: Female
  Weight: 69 kg

DRUGS (9)
  1. SYMBICORT PMDI [Suspect]
     Dosage: UNKNOWN
     Route: 055
  2. ARIMIDEX [Suspect]
     Route: 048
     Dates: start: 201208
  3. LISINOPRIL [Suspect]
     Route: 048
  4. PREMARIN [Concomitant]
  5. FLUTICASONE [Concomitant]
     Route: 045
  6. ASPIRIN [Concomitant]
  7. NIACIN [Concomitant]
  8. ALBUTEROL [Concomitant]
     Dosage: AS NEEDED
  9. DUONEB [Concomitant]

REACTIONS (13)
  - Breast cancer stage I [Unknown]
  - Pain in extremity [Unknown]
  - Cough [Unknown]
  - Hot flush [Unknown]
  - Pain [Unknown]
  - Chest discomfort [Unknown]
  - Musculoskeletal pain [Unknown]
  - Osteoarthritis [Unknown]
  - Osteopenia [Unknown]
  - Musculoskeletal discomfort [Unknown]
  - Musculoskeletal stiffness [Unknown]
  - Joint stiffness [Unknown]
  - Lipoma [Unknown]
